FAERS Safety Report 8181575-6 (Version None)
Quarter: 2012Q1

REPORT INFORMATION
  Report Type: 
  Country: None (occurrence: None)
  Receive Date: 20120302
  Receipt Date: 20120228
  Transmission Date: 20120608
  Serious: Yes (Other)
  Sender: FDA-Public Use
  Company Number: US-PFIZER INC-2012052896

PATIENT
  Sex: Female
  Weight: 52 kg

DRUGS (9)
  1. LYRICA [Suspect]
     Indication: NEUROPATHY PERIPHERAL
     Dosage: 50 MG, 2X/DAY
     Route: 048
     Dates: start: 20111201, end: 20120201
  2. LYRICA [Suspect]
     Dosage: 50MG IN MORNING AND TWO CAPSULES OF 50MG IN NIGHT
     Route: 048
     Dates: start: 20120201
  3. WELLBUTRIN [Concomitant]
     Indication: DEPRESSION
     Dosage: 150 MG, DAILY
     Route: 048
  4. REMERON [Concomitant]
     Indication: DEPRESSION
     Dosage: 45 MG, DAILY
     Route: 048
  5. REMERON [Concomitant]
     Indication: ANXIETY
  6. XANAX [Concomitant]
     Indication: DEPRESSION
     Dosage: UNK, AS NEEDED
     Route: 048
  7. XANAX [Concomitant]
     Indication: ANXIETY
  8. PROTONIX [Concomitant]
     Indication: GASTROOESOPHAGEAL REFLUX DISEASE
     Dosage: 40 MG, DAILY
     Route: 048
  9. WELLBUTRIN [Concomitant]
     Indication: ANXIETY

REACTIONS (6)
  - WEIGHT INCREASED [None]
  - DISORIENTATION [None]
  - DYSARTHRIA [None]
  - DIZZINESS [None]
  - CEREBROVASCULAR ACCIDENT [None]
  - PAIN [None]
